FAERS Safety Report 22333069 (Version 1)
Quarter: 2023Q2

REPORT INFORMATION
  Report Type: Spontaneous
  Country: CN (occurrence: None)
  Receive Date: 20230517
  Receipt Date: 20230517
  Transmission Date: 20230722
  Serious: Yes (Other)
  Sender: FDA-Public Use
  Company Number: 2023A113144

PATIENT
  Age: 70 Year
  Sex: Female

DRUGS (2)
  1. OSIMERTINIB [Suspect]
     Active Substance: OSIMERTINIB
     Indication: Adenocarcinoma metastatic
     Route: 048
     Dates: start: 202106, end: 20211130
  2. BEVACIZUMAB [Concomitant]
     Active Substance: BEVACIZUMAB
     Indication: Adenocarcinoma metastatic

REACTIONS (1)
  - Rhabdomyolysis [Recovering/Resolving]
